FAERS Safety Report 8264370-9 (Version None)
Quarter: 2012Q2

REPORT INFORMATION
  Report Type: 
  Country: None (occurrence: None)
  Receive Date: 20120406
  Receipt Date: 20120327
  Transmission Date: 20120825
  Serious: Yes (Other)
  Sender: FDA-Public Use
  Company Number: PHHY2012BR027507

PATIENT
  Sex: Female

DRUGS (14)
  1. ADALAT [Concomitant]
  2. MODURETIC 5-50 [Concomitant]
  3. PRELONE [Concomitant]
     Indication: BONE PAIN
  4. AMARYL [Concomitant]
  5. GINKGO BILOBA [Concomitant]
  6. METFORMIN HYDROCHLORIDE [Suspect]
     Indication: DIABETES MELLITUS
  7. DIOVAN [Suspect]
     Indication: HYPERTENSION
     Dosage: 1 TABLET DAILY
     Route: 048
  8. DILTIAZEM HYDROCHLORIDE [Concomitant]
  9. CLONAZEPAM [Concomitant]
  10. SIMVASTATIN [Concomitant]
  11. TEGRETOL [Concomitant]
     Indication: HEADACHE
  12. BROMAZEPAM [Concomitant]
     Indication: DISCOMFORT
  13. APRESOLINE [Concomitant]
  14. CALTRATE +D [Concomitant]

REACTIONS (10)
  - BLOOD PRESSURE INCREASED [None]
  - MEMORY IMPAIRMENT [None]
  - BLOOD PRESSURE FLUCTUATION [None]
  - CEREBROVASCULAR ACCIDENT [None]
  - LOSS OF CONSCIOUSNESS [None]
  - TREMOR [None]
  - DYSPHONIA [None]
  - MICTURITION DISORDER [None]
  - SENSORY DISTURBANCE [None]
  - CATARACT [None]
